FAERS Safety Report 9236758 (Version 5)
Quarter: 2014Q3

REPORT INFORMATION
  Report Type: Spontaneous
  Country: US (occurrence: US)
  Receive Date: 20130417
  Receipt Date: 20140717
  Transmission Date: 20150326
  Serious: No
  Sender: FDA-Public Use
  Company Number: US-009507513-1304USA006808

PATIENT
  Sex: Male
  Weight: 75.28 kg

DRUGS (5)
  1. PROSCAR [Suspect]
     Active Substance: FINASTERIDE
     Indication: ALOPECIA
     Dosage: UNK
     Route: 048
     Dates: start: 200612
  2. PROPECIA [Suspect]
     Active Substance: FINASTERIDE
     Dosage: UNK
     Route: 048
  3. PROSCAR [Suspect]
     Active Substance: FINASTERIDE
     Dosage: 1 MG, UNK
     Route: 048
     Dates: start: 20061226, end: 201108
  4. FINASTERIDE. [Suspect]
     Active Substance: FINASTERIDE
     Dosage: UNK
     Route: 048
     Dates: start: 20100619, end: 201108
  5. PROSCAR [Suspect]
     Active Substance: FINASTERIDE
     Dosage: 1.25 MG, QD
     Route: 048

REACTIONS (14)
  - Incorrect dose administered [Unknown]
  - Erectile dysfunction [Not Recovered/Not Resolved]
  - Semen volume decreased [Unknown]
  - Blood cholesterol increased [Unknown]
  - Back pain [Unknown]
  - Drug administration error [Unknown]
  - Attention deficit/hyperactivity disorder [Unknown]
  - Sexual dysfunction [Not Recovered/Not Resolved]
  - Libido decreased [Unknown]
  - Ejaculation disorder [Unknown]
  - Blood pressure increased [Unknown]
  - Musculoskeletal pain [Unknown]
  - Wrong technique in drug usage process [Unknown]
  - Male orgasmic disorder [Unknown]

NARRATIVE: CASE EVENT DATE: 20061226
